FAERS Safety Report 10540061 (Version 1)
Quarter: 2014Q4

REPORT INFORMATION
  Report Type: Spontaneous
  Country: US (occurrence: None)
  Receive Date: 20141022
  Receipt Date: 20141022
  Transmission Date: 20150529
  Serious: Yes (Hospitalization, Other)
  Sender: FDA-Public Use
  Company Number: DAV-AE-CLO-14-02

PATIENT
  Age: 14 Month
  Sex: Male
  Weight: 10 kg

DRUGS (5)
  1. GABAPENTIN. [Concomitant]
     Active Substance: GABAPENTIN
  2. LIDOCAINE. [Concomitant]
     Active Substance: LIDOCAINE
  3. CLONIDINE. [Suspect]
     Active Substance: CLONIDINE
     Indication: ACCIDENTAL EXPOSURE TO PRODUCT
     Dosage: SEE NARRATIVE
  4. KETAMINE (NON-DOCUMENTED PERCENTAGE) [Concomitant]
  5. BACLOFEN. [Concomitant]
     Active Substance: BACLOFEN

REACTIONS (6)
  - Accidental exposure to product by child [None]
  - Respiration abnormal [None]
  - Bradycardia [None]
  - Altered state of consciousness [None]
  - Miosis [None]
  - Toxicity to various agents [None]
